FAERS Safety Report 12521045 (Version 1)
Quarter: 2016Q3

REPORT INFORMATION
  Report Type: Spontaneous
  Country: US (occurrence: US)
  Receive Date: 20160701
  Receipt Date: 20160701
  Transmission Date: 20161109
  Serious: No
  Sender: FDA-Public Use
  Company Number: US-009507513-1606USA007333

PATIENT

DRUGS (1)
  1. ZONTIVITY [Suspect]
     Active Substance: VORAPAXAR SULFATE
     Dosage: 2.08 MG, UNK
     Route: 048

REACTIONS (1)
  - Haemoglobin decreased [Unknown]
